FAERS Safety Report 23271883 (Version 1)
Quarter: 2023Q4

REPORT INFORMATION
  Report Type: Spontaneous
  Country: JP (occurrence: JP)
  Receive Date: 20231207
  Receipt Date: 20231207
  Transmission Date: 20240110
  Serious: Yes (Death, Other)
  Sender: FDA-Public Use
  Company Number: JP-TAKEDA-2023TJP016185

PATIENT
  Age: 68 Year
  Sex: Female
  Weight: 44.9 kg

DRUGS (9)
  1. CABOMETYX [Suspect]
     Active Substance: CABOZANTINIB S-MALATE
     Indication: Renal cell carcinoma
     Dosage: 60 MILLIGRAM, QD
     Route: 048
     Dates: start: 20220810, end: 20220814
  2. CABOMETYX [Suspect]
     Active Substance: CABOZANTINIB S-MALATE
     Dosage: 60 MILLIGRAM, QD
     Route: 048
     Dates: start: 20220816, end: 20220829
  3. CABOMETYX [Suspect]
     Active Substance: CABOZANTINIB S-MALATE
     Dosage: 40 MILLIGRAM, QD
     Route: 048
     Dates: start: 20200830, end: 20220904
  4. CABOMETYX [Suspect]
     Active Substance: CABOZANTINIB S-MALATE
     Dosage: 20 MILLIGRAM, QD
     Route: 048
     Dates: start: 20220919, end: 20221104
  5. CABOMETYX [Suspect]
     Active Substance: CABOZANTINIB S-MALATE
     Dosage: 20 MILLIGRAM, QD
     Route: 048
     Dates: start: 20221108, end: 20221226
  6. DENOSUMAB [Concomitant]
     Active Substance: DENOSUMAB
     Indication: Renal cell carcinoma
     Dosage: UNK
     Route: 050
     Dates: start: 20210719
  7. LOXOPROFEN SODIUM [Concomitant]
     Active Substance: LOXOPROFEN SODIUM
     Indication: Renal cell carcinoma
     Dosage: UNK
     Route: 048
     Dates: start: 20210816
  8. ACETAMINOPHEN\TRAMADOL HYDROCHLORIDE [Concomitant]
     Active Substance: ACETAMINOPHEN\TRAMADOL HYDROCHLORIDE
     Indication: Renal cell carcinoma
     Dosage: UNK
     Route: 048
     Dates: start: 20221128, end: 20221129
  9. ACETAMINOPHEN [Concomitant]
     Active Substance: ACETAMINOPHEN
     Indication: Renal cell carcinoma
     Dosage: UNK
     Route: 048
     Dates: start: 20221128

REACTIONS (1)
  - Death [Fatal]

NARRATIVE: CASE EVENT DATE: 20230725
